FAERS Safety Report 25974550 (Version 3)
Quarter: 2025Q4

REPORT INFORMATION
  Report Type: Report from Study
  Country: EU (occurrence: EU)
  Receive Date: 20251029
  Receipt Date: 20251121
  Transmission Date: 20260118
  Serious: Yes (Hospitalization, Other)
  Sender: ASTELLAS
  Company Number: EU-AFSSAPS-MA2025001357

PATIENT
  Age: 67 Year
  Sex: Male

DRUGS (3)
  1. ENFORTUMAB VEDOTIN [Suspect]
     Active Substance: ENFORTUMAB VEDOTIN
     Indication: Transitional cell carcinoma metastatic
     Dosage: 2ND CYCLE
     Route: 042
     Dates: start: 20250901
  2. PEMBROLIZUMAB [Suspect]
     Active Substance: PEMBROLIZUMAB
     Indication: Transitional cell carcinoma metastatic
     Dosage: 2ND CYCLE
     Route: 042
     Dates: start: 20250901
  3. CEFTAZIDIME [Suspect]
     Active Substance: CEFTAZIDIME
     Indication: Urosepsis
     Route: 042
     Dates: start: 20250901, end: 20250914

REACTIONS (2)
  - Rash macular [Recovered/Resolved]
  - Embolia cutis medicamentosa [Recovered/Resolved]

NARRATIVE: CASE EVENT DATE: 20250912
